FAERS Safety Report 6907858-2 (Version None)
Quarter: 2010Q3

REPORT INFORMATION
  Report Type: 
  Country: None (occurrence: None)
  Receive Date: 20100805
  Receipt Date: 20100630
  Transmission Date: 20110219
  Serious: No
  Sender: FDA-Public Use
  Company Number: US-MYLANLABS-2010S1011868

PATIENT
  Age: 65 Year
  Sex: Female
  Weight: 72.58 kg

DRUGS (1)
  1. DIVALPROEX SODIUM EXTENDED RELEASE [Suspect]
     Indication: BIPOLAR DISORDER
     Route: 048
     Dates: start: 20090201

REACTIONS (2)
  - BLOOD AMYLASE INCREASED [None]
  - WHITE BLOOD CELL COUNT DECREASED [None]
